FAERS Safety Report 6403949-3 (Version None)
Quarter: 2009Q4

REPORT INFORMATION
  Report Type: 
  Country: None (occurrence: None)
  Receive Date: 20091016
  Receipt Date: 20090814
  Transmission Date: 20100525
  Serious: No
  Sender: FDA-Public Use
  Company Number: US-ALEXION-A200900663

PATIENT
  Sex: Female
  Weight: 104.31 kg

DRUGS (7)
  1. SOLIRIS [Suspect]
     Indication: PAROXYSMAL NOCTURNAL HAEMOGLOBINURIA
     Dosage: 450 MG, QW
     Route: 042
     Dates: start: 20090812, end: 20090902
  2. SOLIRIS [Suspect]
     Dosage: 900 MG, UNK
     Route: 042
     Dates: start: 20090909
  3. LOVENOX [Concomitant]
     Dosage: 100 MG, QD
     Route: 058
  4. PREDNISONE [Concomitant]
     Dosage: 15 MG, QOD
  5. FOLIC ACID [Concomitant]
     Dosage: 10 MG, QD
  6. NEXIUM [Concomitant]
     Dosage: 40 MG, QD
  7. ZYRTEC [Concomitant]
     Dosage: 10 MG, QD

REACTIONS (1)
  - HEADACHE [None]
